FAERS Safety Report 21993254 (Version 1)
Quarter: 2023Q1

REPORT INFORMATION
  Report Type: Spontaneous
  Country: US (occurrence: US)
  Receive Date: 20230215
  Receipt Date: 20230215
  Transmission Date: 20230418
  Serious: No
  Sender: FDA-Public Use
  Company Number: US-PADAGIS-2023PAD00084

PATIENT

DRUGS (1)
  1. IMIQUIMOD [Suspect]
     Active Substance: IMIQUIMOD
     Indication: Skin papilloma
     Dosage: UNK, TID A WEEK
     Route: 065

REACTIONS (6)
  - Dry eye [Unknown]
  - Actinic keratosis [Unknown]
  - Condition aggravated [Unknown]
  - Eye irritation [Unknown]
  - Erythema [Unknown]
  - Product use in unapproved indication [Unknown]
